FAERS Safety Report 4353471-3 (Version None)
Quarter: 2004Q2

REPORT INFORMATION
  Report Type: 
  Country: None (occurrence: None)
  Receive Date: 20040430
  Receipt Date: 20040420
  Transmission Date: 20050107
  Serious: Yes (Other)
  Sender: FDA-Public Use
  Company Number: 2004027304

PATIENT
  Age: 46 Year
  Sex: Male

DRUGS (9)
  1. GABAPENTIN [Suspect]
     Indication: MULTIPLE SCLEROSIS
     Dosage: ORAL
     Route: 048
     Dates: start: 20040406, end: 20040419
  2. INTERFERON BETA [Concomitant]
  3. CITALOPRAM HYDROBROMIDE [Concomitant]
  4. ERGOCALCIFEROL [Concomitant]
  5. CALCIUM [Concomitant]
  6. RISEDRONATE SODIUM [Concomitant]
  7. RANITIDINE HYDROCHLORIDE [Concomitant]
  8. ACETAMINOPHEN [Concomitant]
  9. CARBAMAZEPINE [Concomitant]

REACTIONS (2)
  - NEUTROPHIL COUNT DECREASED [None]
  - WHITE BLOOD CELL COUNT DECREASED [None]
